FAERS Safety Report 10157725 (Version 1)
Quarter: 2014Q2

REPORT INFORMATION
  Report Type: Spontaneous
  Country: US (occurrence: US)
  Receive Date: 20140507
  Receipt Date: 20140507
  Transmission Date: 20141212
  Serious: Yes (Hospitalization)
  Sender: FDA-Public Use
  Company Number: US-SA-2014SA055410

PATIENT
  Age: 85 Year
  Sex: Female

DRUGS (2)
  1. LANTUS SOLOSTAR [Suspect]
     Indication: TYPE 2 DIABETES MELLITUS
     Dosage: DOSE:8 UNIT(S)
     Route: 065
  2. SOLOSTAR [Concomitant]

REACTIONS (6)
  - Insomnia [Recovering/Resolving]
  - Anger [Recovering/Resolving]
  - Nervousness [Recovering/Resolving]
  - Eye disorder [Recovering/Resolving]
  - Pollakiuria [Not Recovered/Not Resolved]
  - Blood glucose abnormal [Recovering/Resolving]
